FAERS Safety Report 4916840-6 (Version None)
Quarter: 2006Q1

REPORT INFORMATION
  Report Type: 
  Country: None (occurrence: None)
  Receive Date: 20060216
  Receipt Date: 20060216
  Transmission Date: 20060701
  Serious: Yes (Other)
  Sender: FDA-Public Use
  Company Number: None

PATIENT
  Age: 41 Year
  Sex: Female
  Weight: 52.6173 kg

DRUGS (1)
  1. OXYCODONE ER [Suspect]
     Indication: SPINAL COMPRESSION FRACTURE
     Dosage: 80 MG TID PO
     Route: 048
     Dates: start: 20040101, end: 20040601

REACTIONS (1)
  - NAUSEA [None]
